FAERS Safety Report 17395052 (Version 1)
Quarter: 2020Q1

REPORT INFORMATION
  Report Type: Spontaneous
  Country: AU (occurrence: AU)
  Receive Date: 20200210
  Receipt Date: 20200210
  Transmission Date: 20200409
  Serious: Yes (Disabling)
  Sender: FDA-Public Use
  Company Number: AU-AMGEN-AUSSP2020008966

PATIENT
  Age: 83 Year
  Sex: Female
  Weight: 72 kg

DRUGS (8)
  1. CLOPIDOGREL [Concomitant]
     Active Substance: CLOPIDOGREL BISULFATE
     Dosage: 75 MILLIGRAM, QD (IN THE MORNING)
  2. DILTIAZEM HYDROCHLORIDE. [Concomitant]
     Active Substance: DILTIAZEM HYDROCHLORIDE
     Dosage: 180 MILLIGRAM, QD (IN THE MORNING)
  3. IBEROGAST [Concomitant]
     Active Substance: HERBALS
     Dosage: UNK UNK, AS NECESSARY
     Route: 048
  4. PROLIA [Suspect]
     Active Substance: DENOSUMAB
     Indication: OSTEOPOROTIC FRACTURE
     Dosage: 60 MILLIGRAM PER MILLILITRE
     Route: 058
     Dates: start: 20191210
  5. GLYCERYL TRINITRATE [Concomitant]
     Active Substance: NITROGLYCERIN
     Dosage: 400 MICROGRAM/DOSE SPRAY
     Route: 060
  6. VITAMIN D [COLECALCIFEROL] [Concomitant]
     Active Substance: CHOLECALCIFEROL
     Dosage: 1000 INTERNATIONAL UNIT, QD (IN THE MORNING BD FOR FIRST 6 WEEKS)
  7. PANTOPRAZOLE [Concomitant]
     Active Substance: PANTOPRAZOLE
     Dosage: 20 MILLIGRAM, QD (IN THE MORNING)
  8. ROSUVASTATIN. [Concomitant]
     Active Substance: ROSUVASTATIN
     Dosage: 10 MILLIGRAM, QD (IN THE EVENING)

REACTIONS (3)
  - Hot flush [Not Recovered/Not Resolved]
  - Malaise [Not Recovered/Not Resolved]
  - Neck pain [Not Recovered/Not Resolved]

NARRATIVE: CASE EVENT DATE: 201912
